FAERS Safety Report 25757055 (Version 1)
Quarter: 2025Q3

REPORT INFORMATION
  Report Type: Report from Study
  Country: BR (occurrence: BR)
  Receive Date: 20250903
  Receipt Date: 20250903
  Transmission Date: 20251021
  Serious: Yes (Hospitalization)
  Sender: ALNYLAM PHARMACEUTICALS
  Company Number: BR-ALNYLAM PHARMACEUTICALS, INC.-ALN-2025-004968

PATIENT

DRUGS (1)
  1. GIVLAARI [Suspect]
     Active Substance: GIVOSIRAN SODIUM
     Indication: Porphyria acute
     Dosage: UNK, MONTHLY (EVERY 30 DAYS)
     Route: 058
     Dates: start: 20250710, end: 20250710

REACTIONS (4)
  - Porphyria acute [Unknown]
  - Illness [Unknown]
  - Intentional dose omission [Unknown]
  - Pain [Unknown]

NARRATIVE: CASE EVENT DATE: 20250701
